FAERS Safety Report 7765500-5 (Version None)
Quarter: 2011Q3

REPORT INFORMATION
  Report Type: 
  Country: None (occurrence: None)
  Receive Date: 20110921
  Receipt Date: 20110912
  Transmission Date: 20111222
  Serious: Yes (Other)
  Sender: FDA-Public Use
  Company Number: US-US-EMD SERONO, INC.-7082834

PATIENT
  Sex: Female

DRUGS (2)
  1. LODINE [Concomitant]
  2. REBIF [Suspect]
     Indication: PRODUCT USED FOR UNKNOWN INDICATION
     Route: 058
     Dates: start: 20050218

REACTIONS (9)
  - URINARY TRACT INFECTION [None]
  - FUNGAL INFECTION [None]
  - HYPERHIDROSIS [None]
  - VAGINAL INFECTION [None]
  - SOMNOLENCE [None]
  - BLOOD PRESSURE INCREASED [None]
  - FEELING HOT [None]
  - TOOTH INFECTION [None]
  - FATIGUE [None]
